FAERS Safety Report 4516280-8 (Version None)
Quarter: 2004Q4

REPORT INFORMATION
  Report Type: 
  Country: None (occurrence: None)
  Receive Date: 20041005
  Receipt Date: 20031205
  Transmission Date: 20050328
  Serious: Yes (Other)
  Sender: FDA-Public Use
  Company Number: 04-022-0772

PATIENT
  Sex: Female
  Weight: 63.05 kg

DRUGS (5)
  1. HALOPERIDOL DECANOATE [Suspect]
     Indication: PSYCHOTIC DISORDER
     Dosage: 200 MG IM Q2 WEEKS
     Route: 030
     Dates: start: 20031126
  2. HALOPERIDOL DECANOATE [Suspect]
     Indication: PSYCHOTIC DISORDER
     Dosage: 200 MG IM Q2 WEEKS
     Route: 030
     Dates: start: 20031217
  3. ZYPREXA ZYDIS [Concomitant]
  4. GOGENTIN [Concomitant]
  5. SUPER AYTINAC, VIT. E. COD LIVER OIL [Concomitant]

REACTIONS (1)
  - INJECTION SITE REACTION [None]
